FAERS Safety Report 7002460-9 (Version None)
Quarter: 2010Q3

REPORT INFORMATION
  Report Type: 
  Country: None (occurrence: None)
  Receive Date: 20100917
  Receipt Date: 20100917
  Transmission Date: 20110219
  Serious: Yes (Other)
  Sender: FDA-Public Use
  Company Number: None

PATIENT
  Age: 48 Year
  Sex: Female
  Weight: 84.1 kg

DRUGS (5)
  1. VITAMIN D [Suspect]
     Indication: VITAMIN D DECREASED
     Dosage: 50,000 IU VITAMIN D 1 X WEEK ORALLY
     Route: 048
     Dates: start: 20100817
  2. VITAMIN D [Suspect]
     Indication: VITAMIN D DECREASED
     Dosage: 50,000 IU VITAMIN D 1 X WEEK ORALLY
     Route: 048
     Dates: start: 20100824
  3. VITAMIN D [Suspect]
     Indication: VITAMIN D DECREASED
     Dosage: 50,000 IU VITAMIN D 1 X WEEK ORALLY
     Route: 048
     Dates: start: 20100831
  4. METOPROLOL TARTRATE [Concomitant]
  5. TRIAMTERENE-HTZT [Concomitant]

REACTIONS (3)
  - ANXIETY [None]
  - CONFUSIONAL STATE [None]
  - MENTAL IMPAIRMENT [None]
